FAERS Safety Report 24605869 (Version 2)
Quarter: 2024Q4

REPORT INFORMATION
  Report Type: Report from Study
  Country: BR (occurrence: BR)
  Receive Date: 20241111
  Receipt Date: 20241120
  Transmission Date: 20250114
  Serious: Yes (Other)
  Sender: ABBVIE
  Company Number: BR-ABBVIE-5991669

PATIENT
  Age: 66 Year
  Sex: Female
  Weight: 76 kg

DRUGS (10)
  1. SKYRIZI [Suspect]
     Active Substance: RISANKIZUMAB-RZAA
     Indication: Psoriasis
     Dosage: 75 ML 0.83 (AS REPORTED)?FORM STRENGTH: 75 MG
     Route: 058
     Dates: start: 20230403, end: 202307
  2. SKYRIZI [Suspect]
     Active Substance: RISANKIZUMAB-RZAA
     Route: 058
     Dates: start: 202405
  3. SKYRIZI [Suspect]
     Active Substance: RISANKIZUMAB-RZAA
     Route: 058
     Dates: start: 20241111
  4. OMEPRAZOLE [Concomitant]
     Active Substance: OMEPRAZOLE
     Indication: Gastritis
     Dosage: 40 MILLIGRAM
     Route: 048
     Dates: start: 2022
  5. OMEPRAZOLE [Concomitant]
     Active Substance: OMEPRAZOLE
     Indication: Gastritis
     Dosage: FORM STRENGTH: 20MILLIGRAM
     Route: 048
     Dates: start: 2022
  6. HYDROCHLOROTHIAZIDE [Concomitant]
     Active Substance: HYDROCHLOROTHIAZIDE
     Indication: Hypertension
     Dosage: FORM STRENGTH: 25 MILLIGRAM
     Route: 048
     Dates: start: 202207
  7. SIMVASTATIN [Concomitant]
     Active Substance: SIMVASTATIN
     Indication: Blood cholesterol
     Dosage: FORM STRENGTH: 20 MILLIGRAM
     Route: 048
     Dates: start: 2023
  8. ESCITALOPRAM [Concomitant]
     Active Substance: ESCITALOPRAM OXALATE
     Indication: Anxiety
     Dosage: FORM STRENGTH: 10 MILLIGRAM?START DATE TEXT: 1 YEAR AND A HALF AGO
     Route: 048
     Dates: start: 2023
  9. GABAPENTIN [Suspect]
     Active Substance: GABAPENTIN
     Indication: Herpes zoster
     Dosage: FORM STRENGTH: 300 MILLIGRAM
     Route: 048
     Dates: start: 20240705
  10. LEVOTHYROXINE [Concomitant]
     Active Substance: LEVOTHYROXINE
     Indication: Thyroiditis
     Dosage: FORM STRENGTH: 75 MG?START DATE TEXT: OVER 20 YEARS AGO
     Route: 048

REACTIONS (16)
  - Seizure [Recovered/Resolved]
  - Panic disorder [Recovered/Resolved]
  - Chest pain [Recovered/Resolved]
  - Asthenia [Not Recovered/Not Resolved]
  - Peripheral swelling [Recovering/Resolving]
  - Arthralgia [Not Recovered/Not Resolved]
  - Sleep disorder [Not Recovered/Not Resolved]
  - Emotional disorder [Recovered/Resolved]
  - Nervous system disorder [Recovered/Resolved]
  - Anxiety [Recovered/Resolved]
  - Off label use [Unknown]
  - Skin exfoliation [Recovering/Resolving]
  - Burning sensation [Recovering/Resolving]
  - Seizure [Recovered/Resolved]
  - Therapeutic product effect incomplete [Unknown]
  - Herpes zoster [Recovering/Resolving]

NARRATIVE: CASE EVENT DATE: 20240201
